FAERS Safety Report 5566765-0 (Version None)
Quarter: 2007Q4

REPORT INFORMATION
  Report Type: 
  Country: None (occurrence: None)
  Receive Date: 20071219
  Receipt Date: 20071217
  Transmission Date: 20080405
  Serious: Yes (Other)
  Sender: FDA-Public Use
  Company Number: A0671288A

PATIENT
  Age: 54 Year
  Sex: Female
  Weight: 96.4 kg

DRUGS (19)
  1. TYKERB [Suspect]
     Indication: BREAST CANCER
     Dosage: 5TAB PER DAY
     Route: 048
     Dates: start: 20070601, end: 20071129
  2. XELODA [Concomitant]
  3. LASIX [Concomitant]
     Dosage: 20MG PER DAY
  4. MAG-OX [Concomitant]
     Dosage: 250MG PER DAY
  5. NEURONTIN [Concomitant]
     Dosage: 300MG THREE TIMES PER DAY
  6. VITAMIN B COMPLEX CAP [Concomitant]
  7. B-6 [Concomitant]
  8. ALLEGRA [Concomitant]
  9. NEXIUM [Concomitant]
  10. CELEBREX [Concomitant]
  11. COUMADIN [Concomitant]
  12. CELEXA [Concomitant]
  13. ADVAIR DISKUS 100/50 [Concomitant]
  14. LACTULOSE [Concomitant]
  15. MULTIPLE VITAMIN [Concomitant]
  16. FENTANYL [Concomitant]
  17. HYDROMORPHONE HCL [Concomitant]
  18. ALBUTEROL [Concomitant]
  19. COMPAZINE [Concomitant]

REACTIONS (3)
  - NAIL DISORDER [None]
  - PSORIASIS [None]
  - SKIN CHAPPED [None]
